FAERS Safety Report 16666138 (Version 1)
Quarter: 2019Q3

REPORT INFORMATION
  Report Type: Report from Study
  Country: None (occurrence: GT)
  Receive Date: 20190805
  Receipt Date: 20190805
  Transmission Date: 20191004
  Serious: Yes (Other)
  Sender: FDA-Public Use
  Company Number: GT-ABBVIE-19K-069-2874491-00

PATIENT
  Age: 26 Year
  Sex: Male
  Weight: 70.37 kg

DRUGS (2)
  1. ERYTHROPOIETIN [Concomitant]
     Active Substance: ERYTHROPOIETIN
     Indication: IMMUNE ENHANCEMENT THERAPY
     Dosage: VIAL
     Route: 042
     Dates: start: 2017
  2. ZEMPLAR [Suspect]
     Active Substance: PARICALCITOL
     Indication: HYPERPARATHYROIDISM SECONDARY
     Dosage: DOSE TEXT: AMPULE
     Route: 042
     Dates: start: 20170813, end: 20190630

REACTIONS (1)
  - Renal transplant [Recovered/Resolved]

NARRATIVE: CASE EVENT DATE: 20190702
